FAERS Safety Report 16141489 (Version 1)
Quarter: 2019Q2

REPORT INFORMATION
  Report Type: Spontaneous
  Country: AE (occurrence: AE)
  Receive Date: 20190324
  Receipt Date: 20190324
  Transmission Date: 20190711
  Serious: No
  Sender: FDA-Public Use
  Company Number: None

PATIENT

DRUGS (1)
  1. FLUOROURACIL INJ [Suspect]
     Active Substance: FLUOROURACIL SODIUM

REACTIONS (3)
  - Product label issue [None]
  - Product preparation issue [None]
  - Circumstance or information capable of leading to medication error [None]

NARRATIVE: CASE EVENT DATE: 20190314
